FAERS Safety Report 6280720-7 (Version None)
Quarter: 2009Q3

REPORT INFORMATION
  Report Type: 
  Country: None (occurrence: None)
  Receive Date: 20090724
  Receipt Date: 20081208
  Transmission Date: 20100115
  Serious: No
  Sender: FDA-Public Use
  Company Number: A0759619A

PATIENT
  Age: 64 Year
  Sex: Female

DRUGS (8)
  1. AVANDIA [Suspect]
     Dosage: 4MG TWICE PER DAY
     Route: 048
     Dates: start: 20070101
  2. GLYBURIDE [Concomitant]
  3. HYDROCHLOROTHIAZIDE [Concomitant]
  4. XANAX [Concomitant]
  5. MUCINEX [Concomitant]
  6. TYLENOL [Concomitant]
  7. PROVENTIL-HFA [Concomitant]
  8. ALBUTEROL [Concomitant]

REACTIONS (5)
  - DYSPNOEA [None]
  - MUSCLE SPASMS [None]
  - OEDEMA [None]
  - OEDEMA PERIPHERAL [None]
  - PALPITATIONS [None]
